FAERS Safety Report 6954943-5 (Version None)
Quarter: 2010Q3

REPORT INFORMATION
  Report Type: 
  Country: None (occurrence: None)
  Receive Date: 20100830
  Receipt Date: 20100828
  Transmission Date: 20110219
  Serious: Yes (Hospitalization)
  Sender: FDA-Public Use
  Company Number: PHHO2010US06822

PATIENT
  Sex: Female

DRUGS (2)
  1. RECLAST [Suspect]
  2. NO TREATMENT RECEIVED NOMED [Suspect]
     Indication: CHRONIC OBSTRUCTIVE PULMONARY DISEASE
     Dosage: NO TREATMENT

REACTIONS (1)
  - GASTROINTESTINAL DISORDER [None]
